FAERS Safety Report 9005415 (Version 1)
Quarter: 2013Q1

REPORT INFORMATION
  Report Type: Spontaneous
  Country: US (occurrence: US)
  Receive Date: 20130108
  Receipt Date: 20130108
  Transmission Date: 20140127
  Serious: Yes (Death)
  Sender: FDA-Public Use
  Company Number: US-BAYER-2013-002428

PATIENT
  Age: 53 Year
  Sex: Female

DRUGS (6)
  1. DIPHENHYDRAMINE HYDROCHLORIDE [Suspect]
     Route: 048
  2. BUPROPION [Suspect]
     Route: 048
  3. TRAZODONE [Suspect]
     Route: 048
  4. LOPERAMIDE [Suspect]
     Route: 048
  5. AMPHETAMINE SALTS [Suspect]
     Route: 048
  6. BISMUTH SUBSALICYLATE [Suspect]
     Route: 048

REACTIONS (1)
  - Toxicity to various agents [Fatal]
